FAERS Safety Report 8118194-3 (Version None)
Quarter: 2012Q1

REPORT INFORMATION
  Report Type: 
  Country: None (occurrence: None)
  Receive Date: 20120202
  Receipt Date: 20120118
  Transmission Date: 20120608
  Serious: Yes (Death, Other)
  Sender: FDA-Public Use
  Company Number: FK201200179

PATIENT
  Age: 53 Year
  Sex: Female

DRUGS (1)
  1. PAMIDRONATE DISODIUM [Suspect]
     Indication: METASTASES TO BONE
     Dosage: 90 MG, IN} 2 HOUR PERIOD, Q4WKS X 5 YRS, INTRAVENOUS
     Route: 042

REACTIONS (16)
  - FOCAL SEGMENTAL GLOMERULOSCLEROSIS [None]
  - PROTEIN TOTAL DECREASED [None]
  - ULCER [None]
  - BLOOD CHLORIDE DECREASED [None]
  - BLOOD CALCIUM DECREASED [None]
  - NEOPLASM PROGRESSION [None]
  - HAEMOGLOBIN DECREASED [None]
  - BREAST CANCER METASTATIC [None]
  - RENAL FAILURE [None]
  - LYMPHADENOPATHY [None]
  - BREAST MASS [None]
  - HAEMATOCRIT DECREASED [None]
  - NEPHROTIC SYNDROME [None]
  - PERFORMANCE STATUS DECREASED [None]
  - PLATELET COUNT DECREASED [None]
  - BLOOD POTASSIUM DECREASED [None]
